FAERS Safety Report 8156118-3 (Version None)
Quarter: 2012Q1

REPORT INFORMATION
  Report Type: 
  Country: None (occurrence: None)
  Receive Date: 20120222
  Receipt Date: 20120208
  Transmission Date: 20120608
  Serious: Yes (Other)
  Sender: FDA-Public Use
  Company Number: DE-MYLANLABS-2012S1002749

PATIENT
  Age: 0 Year
  Sex: Female
  Weight: 3.37 kg

DRUGS (3)
  1. SERTRALINE HYDROCHLORIDE [Suspect]
     Dosage: 100 [MG/D ]/ STARTING DECEMBER 2009, DOSAGE BETWEEN 50 AND 100 MG/D
     Route: 064
     Dates: start: 20101120, end: 20110812
  2. SERTRALINE HYDROCHLORIDE [Suspect]
  3. FOLIC ACID [Concomitant]
     Dosage: 1 ST TRIMESTER
     Route: 064

REACTIONS (2)
  - MATERNAL EXPOSURE DURING PREGNANCY [None]
  - MYOCLONUS [None]
